FAERS Safety Report 6678837-8 (Version None)
Quarter: 2010Q2

REPORT INFORMATION
  Report Type: 
  Country: None (occurrence: None)
  Receive Date: 20100408
  Receipt Date: 20100324
  Transmission Date: 20101027
  Serious: Yes (Hospitalization)
  Sender: FDA-Public Use
  Company Number: DSJ-2010-05010

PATIENT
  Age: 81 Year
  Sex: Female

DRUGS (5)
  1. BENICAR [Suspect]
     Indication: HYPERTENSION
     Dosage: 40 MG (40 MG, 1 IN 1 D), PER ORAL; 20 MG (20 MG, 1 IN 1 D), PER ORAL
     Route: 048
     Dates: start: 20080101, end: 20090801
  2. BENICAR [Suspect]
     Indication: HYPERTENSION
     Dosage: 40 MG (40 MG, 1 IN 1 D), PER ORAL; 20 MG (20 MG, 1 IN 1 D), PER ORAL
     Route: 048
     Dates: start: 20091201
  3. BISOPROLOL FUMARATE (BISOPROLOL FUMARATE) (BISOPROLOL FUMARATE) [Concomitant]
  4. ATORVASTATIN CALCIUM (ATORVASTATIN CALCIUM) (ATORVASTATIN CALCIUM) [Concomitant]
  5. FENOFIBRATE [Concomitant]

REACTIONS (3)
  - ANGINA PECTORIS [None]
  - EMBOLISM [None]
  - MYOCARDIAL INFARCTION [None]
